FAERS Safety Report 17225615 (Version 1)
Quarter: 2020Q1

REPORT INFORMATION
  Report Type: Spontaneous
  Country: GB (occurrence: GB)
  Receive Date: 20200102
  Receipt Date: 20200102
  Transmission Date: 20200409
  Serious: Yes (Hospitalization, Other)
  Sender: FDA-Public Use
  Company Number: GB-CASPER PHARMA LLC-2019CAS000667

PATIENT
  Age: 18 Year
  Sex: Female

DRUGS (2)
  1. BISMUTH, METRONIDAZOLE, TETRACYCLIN [Suspect]
     Active Substance: BISMUTH SUBSALICYLATE\METRONIDAZOLE\TETRACYCLINE HYDROCHLORIDE
     Indication: PELVIC INFLAMMATORY DISEASE
     Dosage: 400 MILLIGRAM, TID
     Route: 065
  2. OFLOXACIN. [Suspect]
     Active Substance: OFLOXACIN
     Indication: PELVIC INFLAMMATORY DISEASE
     Dosage: 400 MILLIGRAM, BID
     Route: 065

REACTIONS (1)
  - Psychotic disorder due to a general medical condition [Recovered/Resolved]
